FAERS Safety Report 7335296-X (Version None)
Quarter: 2011Q1

REPORT INFORMATION
  Report Type: 
  Country: None (occurrence: None)
  Receive Date: 20110307
  Receipt Date: 20110222
  Transmission Date: 20110831
  Serious: Yes (Other)
  Sender: FDA-Public Use
  Company Number: PHHY2011IT08192

PATIENT
  Sex: Male

DRUGS (3)
  1. ZOMETA [Suspect]
     Indication: METASTASES TO BONE
     Dosage: 4 MG, QMO
     Route: 042
     Dates: start: 20071001, end: 20090304
  2. DELTACORTENE [Concomitant]
  3. MEGESTROL ACETATE [Concomitant]

REACTIONS (1)
  - OSTEONECROSIS OF JAW [None]
